FAERS Safety Report 4679053-1 (Version None)
Quarter: 2005Q2

REPORT INFORMATION
  Report Type: 
  Country: None (occurrence: None)
  Receive Date: 20050527
  Receipt Date: 20050321
  Transmission Date: 20051028
  Serious: Yes (Other)
  Sender: FDA-Public Use
  Company Number: PHEH2005US03391

PATIENT
  Age: 79 Year
  Sex: Female
  Weight: 52.2 kg

DRUGS (5)
  1. ZELNORM [Suspect]
     Indication: CONSTIPATION
     Dosage: 1/2 6 MG, ONCE/SINGLE
     Dates: start: 20050316, end: 20050316
  2. WARFARIN SODIUM [Concomitant]
  3. XANAX [Concomitant]
  4. ACTONEL [Concomitant]
  5. HYDROCHLOROTHIAZIDE [Concomitant]

REACTIONS (3)
  - COLD SWEAT [None]
  - FEELING ABNORMAL [None]
  - LOSS OF CONSCIOUSNESS [None]
